FAERS Safety Report 4485207-X (Version None)
Quarter: 2004Q4

REPORT INFORMATION
  Report Type: 
  Country: None (occurrence: None)
  Receive Date: 20041026
  Receipt Date: 20040514
  Transmission Date: 20050328
  Serious: No
  Sender: FDA-Public Use
  Company Number: US-BRISTOL-MYERS SQUIBB COMPANY-12588000

PATIENT
  Age: 49 Year
  Sex: Female
  Weight: 70 kg

DRUGS (7)
  1. GLUCOPHAGE XR [Suspect]
     Indication: DIABETES MELLITUS NON-INSULIN-DEPENDENT
     Route: 048
  2. GLUCOTROL [Concomitant]
  3. DIOVAN [Concomitant]
  4. HYDRALAZINE HCL [Concomitant]
  5. NORVASC [Concomitant]
  6. LISINOPRIL [Concomitant]
  7. VITAPLEX PLUS [Concomitant]

REACTIONS (2)
  - BLOOD GLUCOSE INCREASED [None]
  - DIARRHOEA [None]
